FAERS Safety Report 16028691 (Version 1)
Quarter: 2019Q1

REPORT INFORMATION
  Report Type: Spontaneous
  Country: MY (occurrence: MY)
  Receive Date: 20190304
  Receipt Date: 20190304
  Transmission Date: 20190418
  Serious: Yes (Other)
  Sender: FDA-Public Use
  Company Number: MY-TEVA-2019-MY-1020397

PATIENT
  Age: 73 Year
  Sex: Female

DRUGS (1)
  1. RIBOMUSTIN [Suspect]
     Active Substance: BENDAMUSTINE HYDROCHLORIDE
     Indication: DIFFUSE LARGE B-CELL LYMPHOMA
     Dosage: 100 MG/VIAL, CYCLIC
     Route: 042

REACTIONS (2)
  - Dyskinesia [Recovered/Resolved]
  - Product use in unapproved indication [Unknown]
